FAERS Safety Report 5711693-0 (Version None)
Quarter: 2008Q2

REPORT INFORMATION
  Report Type: 
  Country: None (occurrence: None)
  Receive Date: 20080421
  Receipt Date: 20080410
  Transmission Date: 20081010
  Serious: Yes (Hospitalization, Other)
  Sender: FDA-Public Use
  Company Number: PHEH2008US03721

PATIENT
  Age: 60 Year
  Sex: Female

DRUGS (5)
  1. NITROFURANTOIN [Suspect]
     Indication: PROPHYLAXIS URINARY TRACT INFECTION
     Dates: start: 20070101, end: 20080201
  2. BACLOFEN [Suspect]
     Indication: MUSCLE SPASMS
  3. GABAPENTIN [Suspect]
     Indication: NEURALGIA
  4. REBIF [Suspect]
     Indication: MULTIPLE SCLEROSIS
     Dosage: 44 MCG, 3 IN 1 WEEK
     Route: 058
     Dates: start: 20060314, end: 20080128
  5. ENABLEX [Suspect]
     Indication: BLADDER DISORDER
     Dates: start: 20070101, end: 20080201

REACTIONS (5)
  - FACE OEDEMA [None]
  - HEPATIC ENZYME INCREASED [None]
  - HEPATITIS [None]
  - JAUNDICE [None]
  - OEDEMA PERIPHERAL [None]
